FAERS Safety Report 5880006-6 (Version None)
Quarter: 2008Q3

REPORT INFORMATION
  Report Type: 
  Country: None (occurrence: None)
  Receive Date: 20080910
  Receipt Date: 20080910
  Transmission Date: 20090109
  Serious: Yes (Other)
  Sender: FDA-Public Use
  Company Number: None

PATIENT
  Age: 40 Year
  Sex: Female
  Weight: 65.7716 kg

DRUGS (2)
  1. XANAX XR [Suspect]
     Indication: ANXIETY
     Dosage: 1 MG ONCE DAILY AT HS PO
     Route: 048
     Dates: start: 20080804, end: 20080809
  2. XANAX XR [Suspect]
     Indication: ANXIETY
     Dosage: 1 MG ONCE DAILY AT HS PO
     Route: 048
     Dates: start: 20080906, end: 20080907

REACTIONS (18)
  - ANGER [None]
  - ANXIETY [None]
  - ARTHRALGIA [None]
  - CONDITION AGGRAVATED [None]
  - DECREASED APPETITE [None]
  - DISTURBANCE IN ATTENTION [None]
  - DISTURBANCE IN SOCIAL BEHAVIOUR [None]
  - EMOTIONAL DISTRESS [None]
  - FEELING ABNORMAL [None]
  - IMPAIRED WORK ABILITY [None]
  - INSOMNIA [None]
  - IRRITABILITY [None]
  - MALAISE [None]
  - MASTICATION DISORDER [None]
  - NAUSEA [None]
  - STRESS [None]
  - SUICIDAL IDEATION [None]
  - TENSION [None]
